FAERS Safety Report 5322118-1 (Version None)
Quarter: 2007Q2

REPORT INFORMATION
  Report Type: 
  Country: None (occurrence: None)
  Receive Date: 20070507
  Receipt Date: 20070423
  Transmission Date: 20071010
  Serious: Yes (Hospitalization)
  Sender: FDA-Public Use
  Company Number: 2007BI006130

PATIENT
  Age: 71 Year
  Sex: Male

DRUGS (4)
  1. AVONEX [Suspect]
     Indication: MULTIPLE SCLEROSIS
     Dosage: 30 UG;QW;IM
     Route: 030
     Dates: start: 20061012
  2. ARICEPT [Concomitant]
  3. TRAZODONE HCL [Concomitant]
  4. VITAMIN CAP [Concomitant]

REACTIONS (6)
  - GAIT DISTURBANCE [None]
  - HEMIPARESIS [None]
  - HYPOTENSION [None]
  - INSOMNIA [None]
  - MULTIPLE SCLEROSIS [None]
  - SYNCOPE [None]
